FAERS Safety Report 5501512-X (Version None)
Quarter: 2007Q4

REPORT INFORMATION
  Report Type: 
  Country: None (occurrence: None)
  Receive Date: 20071026
  Receipt Date: 20071015
  Transmission Date: 20080405
  Serious: Yes (Hospitalization, Other)
  Sender: FDA-Public Use
  Company Number: 100#03#2007-04136

PATIENT
  Age: 51 Year
  Sex: Female

DRUGS (4)
  1. AZITHROMYCIN [Suspect]
     Indication: PSEUDOMONAS INFECTION
  2. COLOMYCIN (COLISTIN) (COLISTIN SULPHATE, COLISTIMETHATE SODIUM) [Suspect]
     Indication: PSEUDOMONAS INFECTION
     Dosage: 2MIU, THREE TIMES DAILY, INTRAVENOUS
     Route: 042
  3. TOBRAMYCIN [Suspect]
     Indication: PSEUDOMONAS INFECTION
     Dosage: INHALATION; 120MG, THREE TIMES DAILY INTRAVENOUS;
     Route: 055
  4. TOBRAMYCIN [Suspect]
     Indication: PSEUDOMONAS INFECTION
     Dosage: INHALATION; 120MG, THREE TIMES DAILY INTRAVENOUS;
     Route: 055
     Dates: start: 20040201

REACTIONS (6)
  - CONDITION AGGRAVATED [None]
  - DRUG LEVEL INCREASED [None]
  - EOSINOPHILIA [None]
  - PSEUDOMONAS INFECTION [None]
  - RENAL FAILURE ACUTE [None]
  - RENAL IMPAIRMENT [None]
